FAERS Safety Report 8785617 (Version 5)
Quarter: 2013Q3

REPORT INFORMATION
  Report Type: Report from Study
  Country: JP (occurrence: JP)
  Receive Date: 20120914
  Receipt Date: 20130925
  Transmission Date: 20140515
  Serious: Yes (Other)
  Sender: FDA-Public Use
  Company Number: JP-VERTEX PHARMACEUTICAL INC.-2012-020931

PATIENT
  Age: 62 Year
  Sex: Male

DRUGS (31)
  1. VX-950 (TELAPREVIR) [Suspect]
     Indication: CHRONIC HEPATITIS C
     Dosage: 2250 MG, QD
     Route: 048
     Dates: start: 20120713, end: 20120824
  2. VX-950 (TELAPREVIR) [Suspect]
     Dosage: 1500 MG, QD
     Route: 048
     Dates: start: 20120825, end: 20121004
  3. REBETOL [Suspect]
     Indication: CHRONIC HEPATITIS C
     Dosage: 600 MG, UNK
     Route: 048
     Dates: start: 20120713, end: 20120810
  4. REBETOL [Suspect]
     Dosage: 200 MG, UNK
     Route: 048
     Dates: start: 20120811, end: 20120831
  5. REBETOL [Suspect]
     Dosage: 200 MG, QOD
     Route: 048
     Dates: start: 20120901, end: 20121004
  6. REBETOL [Suspect]
     Dosage: 200 MG, QOD
     Route: 048
     Dates: start: 20121029, end: 20121101
  7. REBETOL [Suspect]
     Dosage: 200 MG, QD
     Route: 048
     Dates: start: 20121102, end: 20121107
  8. PEGINTERFERON ALFA-2B [Suspect]
     Indication: CHRONIC HEPATITIS C
     Dosage: 1.5 ?G/KG, QW
     Route: 058
     Dates: start: 20120713, end: 20120803
  9. PEGINTERFERON ALFA-2B [Suspect]
     Dosage: 0.75 ?G/KG, QW
     Route: 058
     Dates: start: 20120810, end: 20121102
  10. ADRENAL HORMONE PREPARATIONS [Suspect]
     Dosage: UNK
  11. VOLTAREN [Concomitant]
     Indication: PYREXIA
     Dosage: 175 MG, QD,
     Route: 054
     Dates: start: 20120713, end: 20120713
  12. VOLTAREN [Concomitant]
     Dosage: 175 MG, QD
     Route: 054
     Dates: start: 20120720, end: 20120720
  13. MUCOSTA [Concomitant]
     Dosage: 300 MG, QD
     Route: 048
     Dates: start: 20120718, end: 20120718
  14. MUCOSTA [Concomitant]
     Dosage: 600 MG, QD
     Route: 048
     Dates: start: 20120719, end: 20120719
  15. MUCOSTA [Concomitant]
     Dosage: 300 MG, QD
     Route: 048
     Dates: start: 20120720, end: 20120721
  16. MUCOSTA [Concomitant]
     Dosage: 200 MG, QD
     Route: 048
     Dates: start: 20120723, end: 20120726
  17. MUCOSTA [Concomitant]
     Dosage: 100 MG, QD
     Route: 048
     Dates: start: 20120727, end: 20120809
  18. TAKEPRON [Concomitant]
     Dosage: 1 DF, QD
     Route: 048
     Dates: start: 20120719, end: 20120726
  19. TAKEPRON [Concomitant]
     Dosage: 2 DF, QD
     Route: 048
     Dates: start: 20120727, end: 20120727
  20. TAKEPRON [Concomitant]
     Dosage: 1 DF, QD
     Route: 048
     Dates: start: 20120728, end: 20120801
  21. TAKEPRON [Concomitant]
     Dosage: 1 DF, QD
     Route: 048
     Dates: start: 20120803
  22. NERIPROCT [Concomitant]
     Dosage: 10 DF, QD
     Route: 054
     Dates: start: 20120719, end: 20120719
  23. LAMISIL [Concomitant]
     Dosage: 30 G, QD
     Route: 061
     Dates: start: 20121012, end: 20121012
  24. LAMISIL [Concomitant]
     Dosage: 30 G, QD
     Route: 061
     Dates: start: 20121109, end: 20121109
  25. WARFARIN [Concomitant]
     Dosage: 1 MG, QD
     Route: 048
     Dates: start: 20120814, end: 20120824
  26. ALESION [Concomitant]
     Dosage: 10 MG, QD
     Route: 048
     Dates: start: 20121004, end: 20121205
  27. ZYLORIC [Concomitant]
     Dosage: 2 DF, QD
     Route: 048
     Dates: start: 20121004, end: 20121206
  28. ZYLORIC [Concomitant]
     Dosage: 2 DF, QD
     Route: 048
     Dates: start: 20121214
  29. JANUVIA [Concomitant]
     Dosage: 50 MG, QD
     Route: 048
     Dates: start: 20121004
  30. BUP-4 [Concomitant]
     Dosage: 1 DF, QD
     Route: 048
     Dates: start: 20121004
  31. URSO [Concomitant]
     Dosage: 600 MG, QD
     Route: 048
     Dates: start: 20121109, end: 20121206

REACTIONS (3)
  - Neutrophil percentage decreased [Recovered/Resolved]
  - White blood cell count decreased [Not Recovered/Not Resolved]
  - Haemoglobin decreased [Not Recovered/Not Resolved]
